FAERS Safety Report 10876614 (Version 1)
Quarter: 2015Q1

REPORT INFORMATION
  Report Type: Spontaneous
  Country: TR (occurrence: TR)
  Receive Date: 20150301
  Receipt Date: 20150301
  Transmission Date: 20150721
  Serious: Yes (Hospitalization)
  Sender: FDA-Public Use
  Company Number: ALCN2015TR001296

PATIENT
  Age: 26 Week
  Sex: Male
  Weight: 1 kg

DRUGS (2)
  1. PHENYLEPHRINE HCL [Suspect]
     Active Substance: PHENYLEPHRINE HYDROCHLORIDE
     Indication: MYDRIASIS
     Dosage: 1 GTT AT 0, 30, 60 MINUTES
     Route: 047
  2. TROPICAMIDE. [Suspect]
     Active Substance: TROPICAMIDE
     Dosage: 1 GTT AT 15, 45 AND 75 MINUTES
     Route: 047

REACTIONS (4)
  - Food intolerance [Recovered/Resolved]
  - Ileus [Recovered/Resolved]
  - Apnoea neonatal [Recovered/Resolved]
  - Abdominal distension [Recovered/Resolved]
